FAERS Safety Report 7169858-X (Version None)
Quarter: 2010Q4

REPORT INFORMATION
  Report Type: 
  Country: None (occurrence: None)
  Receive Date: 20101217
  Receipt Date: 20101210
  Transmission Date: 20110411
  Serious: Yes (Hospitalization, Other)
  Sender: FDA-Public Use
  Company Number: PHHY2010US79410

PATIENT
  Sex: Male

DRUGS (4)
  1. TOBI [Suspect]
     Indication: OBSTRUCTIVE AIRWAYS DISORDER
     Dosage: 300 MG, BID
     Dates: start: 20101020
  2. TOBI [Suspect]
     Indication: BRONCHITIS CHRONIC
  3. TOBI [Suspect]
     Indication: CHRONIC OBSTRUCTIVE PULMONARY DISEASE
  4. TOBI [Suspect]
     Indication: EMPHYSEMA

REACTIONS (5)
  - BRONCHIAL SECRETION RETENTION [None]
  - COUGH [None]
  - DYSPNOEA [None]
  - INCREASED BRONCHIAL SECRETION [None]
  - TRACHEOSTOMY [None]
